FAERS Safety Report 9683753 (Version 1)
Quarter: 2013Q4

REPORT INFORMATION
  Report Type: Spontaneous
  Country: US (occurrence: None)
  Receive Date: 20131111
  Receipt Date: 20131111
  Transmission Date: 20140711
  Serious: Yes (Disabling)
  Sender: FDA-Public Use
  Company Number: None

PATIENT
  Age: 37 Year
  Sex: Female
  Weight: 90.72 kg

DRUGS (1)
  1. CIPROFLOXACIN [Suspect]
     Indication: SALMONELLA BACTERAEMIA
     Dosage: IV + APPROX
     Route: 048

REACTIONS (10)
  - Respiratory tract congestion [None]
  - Bronchial irritation [None]
  - Palpitations [None]
  - Tendonitis [None]
  - Arthralgia [None]
  - Joint stiffness [None]
  - Musculoskeletal stiffness [None]
  - Fall [None]
  - Ligament rupture [None]
  - Paraesthesia [None]
